FAERS Safety Report 10625075 (Version 1)
Quarter: 2014Q4

REPORT INFORMATION
  Report Type: Spontaneous
  Country: DK (occurrence: DK)
  Receive Date: 20141204
  Receipt Date: 20141204
  Transmission Date: 20150529
  Serious: Yes (Hospitalization)
  Sender: FDA-Public Use
  Company Number: DK-AUROBINDO-AUR-APL-2014-12734

PATIENT
  Sex: Male

DRUGS (2)
  1. PREDNISOLON                        /00016201/ [Concomitant]
     Active Substance: PREDNISOLONE
     Indication: MYALGIA
     Dosage: UNK
     Route: 065
     Dates: start: 20131020
  2. LAMOTRIGINE 25MG [Suspect]
     Active Substance: LAMOTRIGINE
     Indication: EPILEPSY
     Dosage: UNK
     Route: 065
     Dates: start: 20140115, end: 20140201

REACTIONS (1)
  - Drug hypersensitivity [Unknown]
